FAERS Safety Report 23411204 (Version 2)
Quarter: 2025Q1

REPORT INFORMATION
  Report Type: Spontaneous
  Country: US (occurrence: US)
  Receive Date: 20240117
  Receipt Date: 20250115
  Transmission Date: 20250408
  Serious: No
  Sender: SK LIFE SCIENCE
  Company Number: US-SK LIFE SCIENCE, INC-SKPVG-2023-000415

PATIENT

DRUGS (7)
  1. XCOPRI [Suspect]
     Active Substance: CENOBAMATE
     Indication: Epilepsy
     Route: 048
     Dates: start: 2023
  2. XCOPRI [Suspect]
     Active Substance: CENOBAMATE
     Indication: Seizure
     Route: 048
     Dates: end: 20230416
  3. XCOPRI [Suspect]
     Active Substance: CENOBAMATE
     Route: 048
     Dates: end: 20241002
  4. XCOPRI [Suspect]
     Active Substance: CENOBAMATE
     Dosage: 350MG (TWO 150MG, AND ONE 50MG) ONCE DAILY IN THE EVENING
     Route: 048
     Dates: end: 20240313
  5. XCOPRI [Suspect]
     Active Substance: CENOBAMATE
     Route: 048
     Dates: start: 2024, end: 2024
  6. XCOPRI [Suspect]
     Active Substance: CENOBAMATE
     Route: 048
     Dates: start: 2024
  7. LAMICTAL [Suspect]
     Active Substance: LAMOTRIGINE
     Indication: Product used for unknown indication
     Dosage: TWO 150MG TABLETS, TWICE A DAY, 300MG IN THE MORNING AND 300MG IN THE EVENING
     Route: 065

REACTIONS (15)
  - Product use issue [Recovered/Resolved]
  - Mental impairment [Recovering/Resolving]
  - Incoherent [Recovering/Resolving]
  - Loss of personal independence in daily activities [Recovering/Resolving]
  - Aura [Recovering/Resolving]
  - Feeling abnormal [Unknown]
  - Malaise [Recovered/Resolved]
  - Decreased appetite [Not Recovered/Not Resolved]
  - Dizziness [Recovering/Resolving]
  - Disturbance in attention [Unknown]
  - Confusional state [Unknown]
  - Somnolence [Unknown]
  - Weight decreased [Unknown]
  - Drug interaction [Unknown]
  - Depressed mood [Unknown]

NARRATIVE: CASE EVENT DATE: 20230417
